FAERS Safety Report 7253086-3 (Version None)
Quarter: 2011Q1

REPORT INFORMATION
  Report Type: 
  Country: None (occurrence: None)
  Receive Date: 20110129
  Receipt Date: 20100127
  Transmission Date: 20110831
  Serious: No
  Sender: FDA-Public Use
  Company Number: US-ABBOTT-10P-163-0622521-00

PATIENT
  Sex: Female
  Weight: 87.168 kg

DRUGS (2)
  1. HUMIRA [Suspect]
     Indication: RHEUMATOID ARTHRITIS
     Dates: end: 20100127
  2. HUMIRA [Suspect]
     Dosage: SYRINGE
     Dates: start: 20050101

REACTIONS (1)
  - DRUG INEFFECTIVE [None]
